FAERS Safety Report 22042939 (Version 1)
Quarter: 2023Q1

REPORT INFORMATION
  Report Type: Report from Study
  Country: DE (occurrence: DE)
  Receive Date: 20230228
  Receipt Date: 20230228
  Transmission Date: 20230417
  Serious: Yes (Hospitalization)
  Sender: FDA-Public Use
  Company Number: DE-002147023-NVSC2023DE041167

PATIENT

DRUGS (3)
  1. DICLOFENAC [Suspect]
     Active Substance: DICLOFENAC
     Indication: Axial spondyloarthritis
     Dosage: 100 MG,  5 DAYS/ WEEK
     Route: 065
     Dates: start: 20151010, end: 20220401
  2. DICLOFENAC [Suspect]
     Active Substance: DICLOFENAC
     Dosage: 75 MG, 3 DAYS/ WEEK
     Route: 065
     Dates: start: 20220501
  3. HYRIMOZ [Suspect]
     Active Substance: ADALIMUMAB-ADAZ
     Indication: Axial spondyloarthritis
     Dosage: 40 MG, Q2W
     Route: 065
     Dates: start: 20211210

REACTIONS (1)
  - Spinal stenosis [Recovered/Resolved]

NARRATIVE: CASE EVENT DATE: 20220405
